FAERS Safety Report 23110577 (Version 1)
Quarter: 2023Q4

REPORT INFORMATION
  Report Type: Report from Study
  Country: US (occurrence: US)
  Receive Date: 20231026
  Receipt Date: 20231026
  Transmission Date: 20240110
  Serious: Yes (Other)
  Sender: FDA-Public Use
  Company Number: US-ABBVIE-5462401

PATIENT
  Age: 43 Year
  Sex: Female

DRUGS (2)
  1. HUMIRA [Suspect]
     Active Substance: ADALIMUMAB
     Indication: Crohn^s disease
     Dosage: LAST ADMIN DATE- 2013
     Route: 058
     Dates: start: 20131022
  2. HUMIRA [Suspect]
     Active Substance: ADALIMUMAB
     Dosage: FIRST ADMIN DATE- 2021
     Route: 058

REACTIONS (3)
  - Ileostomy [Recovering/Resolving]
  - Drug ineffective [Not Recovered/Not Resolved]
  - Stoma creation [Recovering/Resolving]

NARRATIVE: CASE EVENT DATE: 20131022
